FAERS Safety Report 9188754 (Version 1)
Quarter: 2013Q1

REPORT INFORMATION
  Report Type: Spontaneous
  Country: SE (occurrence: SE)
  Receive Date: 20130326
  Receipt Date: 20130326
  Transmission Date: 20140127
  Serious: Yes (Life-Threatening, Hospitalization, Other)
  Sender: FDA-Public Use
  Company Number: SE-ROXANE LABORATORIES, INC.-2013-RO-00402RO

PATIENT
  Age: 55 Year
  Sex: Female

DRUGS (4)
  1. LOSARTAN POTASSIUM USP [Suspect]
     Indication: HYPERTENSION
     Dosage: 50 MG
  2. PREDNISOLONE [Suspect]
     Indication: NEURODERMATITIS
     Dosage: 5 MG
     Route: 048
  3. CLEMASTIN [Suspect]
     Indication: NEURODERMATITIS
     Dosage: 3 MG
  4. TRIPTAN [Concomitant]
     Indication: MIGRAINE

REACTIONS (2)
  - Arteriospasm coronary [Recovered/Resolved with Sequelae]
  - Cardiac failure [Not Recovered/Not Resolved]
